FAERS Safety Report 5336704-6 (Version None)
Quarter: 2007Q2

REPORT INFORMATION
  Report Type: 
  Country: None (occurrence: None)
  Receive Date: 20070524
  Receipt Date: 20070524
  Transmission Date: 20071010
  Serious: Yes (Hospitalization)
  Sender: FDA-Public Use
  Company Number: None

PATIENT
  Age: 52 Year
  Sex: Female
  Weight: 82.5547 kg

DRUGS (2)
  1. FELODIPINE [Suspect]
     Indication: CORONARY ARTERY DISEASE
     Dosage: 5 MG DAILY (CONVERTED FROM AMLODIPINE 5MG DAILY)
     Dates: start: 20060901
  2. FELODIPINE [Suspect]
     Indication: HYPERTENSION
     Dosage: 5 MG DAILY (CONVERTED FROM AMLODIPINE 5MG DAILY)
     Dates: start: 20060901

REACTIONS (4)
  - DYSPNOEA [None]
  - FATIGUE [None]
  - MYALGIA [None]
  - TACHYCARDIA [None]
